FAERS Safety Report 17767990 (Version 1)
Quarter: 2020Q2

REPORT INFORMATION
  Report Type: Spontaneous
  Country: BR (occurrence: BR)
  Receive Date: 20200511
  Receipt Date: 20200511
  Transmission Date: 20200714
  Serious: Yes (Hospitalization)
  Sender: FDA-Public Use
  Company Number: BR-CELGENEUS-BRA-20200501174

PATIENT
  Sex: Female

DRUGS (2)
  1. THALOMID [Suspect]
     Active Substance: THALIDOMIDE
     Indication: MYELODYSPLASTIC SYNDROME
     Route: 048
     Dates: start: 201612, end: 201712
  2. VIDAZA [Suspect]
     Active Substance: AZACITIDINE
     Indication: MYELODYSPLASTIC SYNDROME
     Route: 065
     Dates: start: 201804, end: 201806

REACTIONS (5)
  - Haematotoxicity [Unknown]
  - Full blood count decreased [Unknown]
  - Neuropathy peripheral [Unknown]
  - Iron overload [Unknown]
  - Neutropenia [Unknown]
